FAERS Safety Report 6086067-6 (Version None)
Quarter: 2009Q1

REPORT INFORMATION
  Report Type: 
  Country: None (occurrence: None)
  Receive Date: 20090217
  Receipt Date: 20090217
  Transmission Date: 20090719
  Serious: Yes (Other)
  Sender: FDA-Public Use
  Company Number: None

PATIENT
  Age: 71 Year
  Sex: Female
  Weight: 56.246 kg

DRUGS (3)
  1. IBANDRONATE SODIUM [Suspect]
     Indication: OSTEOPOROSIS
     Dosage: 150 MG MONTHLY PO
     Route: 048
     Dates: start: 20060518, end: 20080112
  2. ZOLEDRONIC ACID [Suspect]
     Indication: OSTEOPOROSIS
     Dosage: 5 MG YEARLY IV DRIP
     Route: 041
     Dates: start: 20081014, end: 20081014
  3. ALEDRONATE [Concomitant]

REACTIONS (3)
  - ENDODONTIC PROCEDURE [None]
  - LOOSE TOOTH [None]
  - OSTEONECROSIS [None]
